FAERS Safety Report 18688689 (Version 2)
Quarter: 2021Q1

REPORT INFORMATION
  Report Type: Report from Study
  Country: None (occurrence: JP)
  Receive Date: 20201231
  Receipt Date: 20210115
  Transmission Date: 20210419
  Serious: Yes (Other)
  Sender: FDA-Public Use
  Company Number: JP-CLINIGEN GROUP PLC/ CLINIGEN HEALTHCARE LTD-JP-CLGN-20-00438

PATIENT
  Sex: Male

DRUGS (8)
  1. SAVENE [Suspect]
     Active Substance: DEXRAZOXANE
     Route: 041
     Dates: start: 20201002
  2. SAVENE [Suspect]
     Active Substance: DEXRAZOXANE
     Indication: CHEMOTHERAPY CARDIOTOXICITY ATTENUATION
     Route: 041
     Dates: start: 20200811, end: 20200812
  3. SAVENE [Suspect]
     Active Substance: DEXRAZOXANE
     Indication: INFUSION SITE EXTRAVASATION
     Route: 041
     Dates: start: 20200908, end: 20200909
  4. SAVENE [Suspect]
     Active Substance: DEXRAZOXANE
     Route: 041
     Dates: start: 20201023
  5. THERARUBICIN [Concomitant]
     Active Substance: PIRARUBICIN HYDROCHLORIDE
     Indication: HEPATOBLASTOMA
     Dates: start: 20200811, end: 20200812
  6. THERARUBICIN [Concomitant]
     Active Substance: PIRARUBICIN HYDROCHLORIDE
     Dates: start: 20201023
  7. THERARUBICIN [Concomitant]
     Active Substance: PIRARUBICIN HYDROCHLORIDE
     Dates: start: 20200908, end: 20200909
  8. THERARUBICIN [Concomitant]
     Active Substance: PIRARUBICIN HYDROCHLORIDE
     Dates: start: 20201002

REACTIONS (1)
  - Off label use [Unknown]
